FAERS Safety Report 21146196 (Version 4)
Quarter: 2022Q3

REPORT INFORMATION
  Report Type: Spontaneous
  Country: US (occurrence: US)
  Receive Date: 20220729
  Receipt Date: 20220927
  Transmission Date: 20221027
  Serious: Yes (Other)
  Sender: FDA-Public Use
  Company Number: US-PFIZER INC-PV202200032962

PATIENT
  Age: 22 Year
  Sex: Male

DRUGS (1)
  1. XYNTHA [Suspect]
     Active Substance: ANTIHEMOPHILIC FACTOR, HUMAN RECOMBINANT RESIDUES 743-1636 DELETED
     Indication: Factor VIII deficiency
     Dosage: 3000 IU, AS NEEDED (IV DAILY X3 AS NEEDED FOR BLEEDING, MAY REPEAT X ONCE A DAY)
     Route: 042

REACTIONS (2)
  - Haemorrhage [Unknown]
  - Hand fracture [Unknown]

NARRATIVE: CASE EVENT DATE: 20211001
